FAERS Safety Report 4563561-8 (Version None)
Quarter: 2005Q1

REPORT INFORMATION
  Report Type: 
  Country: None (occurrence: None)
  Receive Date: 20050128
  Receipt Date: 20040928
  Transmission Date: 20050727
  Serious: No
  Sender: FDA-Public Use
  Company Number: US-GLAXOSMITHKLINE-A0527581A

PATIENT
  Age: 32 Year
  Sex: Female

DRUGS (4)
  1. WELLBUTRIN [Suspect]
     Route: 048
     Dates: start: 20040801
  2. TRAZODONE HCL [Concomitant]
  3. LITHIUM [Concomitant]
  4. LEVOXYL [Concomitant]

REACTIONS (2)
  - ARTHRALGIA [None]
  - PYREXIA [None]
